FAERS Safety Report 17994274 (Version 2)
Quarter: 2020Q3

REPORT INFORMATION
  Report Type: Spontaneous
  Country: US (occurrence: US)
  Receive Date: 20200708
  Receipt Date: 20200807
  Transmission Date: 20201103
  Serious: No
  Sender: FDA-Public Use
  Company Number: US-PFIZER INC-2020260997

PATIENT
  Age: 76 Year
  Sex: Female
  Weight: 57.15 kg

DRUGS (1)
  1. XELJANZ XR [Suspect]
     Active Substance: TOFACITINIB CITRATE
     Indication: PSORIATIC ARTHROPATHY
     Dosage: 11 MG, DAILY (11 MG ONE TABLET DAILY BY MOUTH)
     Route: 048
     Dates: end: 2020

REACTIONS (1)
  - Drug ineffective [Unknown]
